FAERS Safety Report 21552230 (Version 2)
Quarter: 2022Q4

REPORT INFORMATION
  Report Type: Spontaneous
  Country: CA (occurrence: CA)
  Receive Date: 20221104
  Receipt Date: 20221115
  Transmission Date: 20230113
  Serious: Yes (Hospitalization)
  Sender: FDA-Public Use
  Company Number: CA-CELLTRION INC.-2022CA017421

PATIENT

DRUGS (4)
  1. INFLECTRA [Suspect]
     Active Substance: INFLIXIMAB-DYYB
     Indication: Crohn^s disease
     Dosage: 10 MG/KG, WEEK 0, 2, 6 THEN EVERY 8 WEEKS-HOSPITAL START
     Route: 042
     Dates: start: 20221007
  2. INFLECTRA [Suspect]
     Active Substance: INFLIXIMAB-DYYB
     Dosage: 10 MG/KG, WEEK 0, 2, 6 THEN EVERY 8 WEEKS-HOSPITAL START
     Route: 042
     Dates: start: 20221025
  3. CALCIUM [Concomitant]
     Active Substance: CALCIUM
     Dosage: 1 DF, DOSAGE UNKNOWN
     Route: 065
  4. PREDNISONE [Concomitant]
     Active Substance: PREDNISONE
     Dosage: 1 DF, DOSAGE UNKNOWN
     Route: 064

REACTIONS (6)
  - Pneumonia [Unknown]
  - Condition aggravated [Not Recovered/Not Resolved]
  - Ulcer [Unknown]
  - Asthenia [Unknown]
  - Off label use [Unknown]
  - Intentional product use issue [Unknown]

NARRATIVE: CASE EVENT DATE: 20220101
